FAERS Safety Report 7687224-5 (Version None)
Quarter: 2011Q3

REPORT INFORMATION
  Report Type: 
  Country: None (occurrence: None)
  Receive Date: 20110816
  Receipt Date: 20110808
  Transmission Date: 20111222
  Serious: Yes (Other)
  Sender: FDA-Public Use
  Company Number: US-US-EMD SERONO, INC.-7076401

PATIENT
  Sex: Female
  Weight: 49 kg

DRUGS (3)
  1. LORCET-HD [Concomitant]
     Indication: MYALGIA
     Dates: start: 20030101
  2. VALIUM [Concomitant]
     Indication: ANXIETY
     Dates: start: 20030101
  3. REBIF [Suspect]
     Indication: MULTIPLE SCLEROSIS
     Route: 058
     Dates: start: 20031101

REACTIONS (9)
  - INJECTION SITE MASS [None]
  - CYST [None]
  - BLOOD PRESSURE DECREASED [None]
  - CHILLS [None]
  - INJECTION SITE INDURATION [None]
  - ASTHENIA [None]
  - FALL [None]
  - CENTRAL NERVOUS SYSTEM LESION [None]
  - INJECTION SITE DISCOLOURATION [None]
